FAERS Safety Report 10371954 (Version 1)
Quarter: 2014Q3

REPORT INFORMATION
  Report Type: Report from Study
  Country: US (occurrence: US)
  Receive Date: 20140808
  Receipt Date: 20140808
  Transmission Date: 20150326
  Serious: Yes (Other)
  Sender: FDA-Public Use
  Company Number: US-SA-2014SA103056

PATIENT
  Age: 61 Year
  Sex: Female

DRUGS (1)
  1. LANTUS [Suspect]
     Active Substance: INSULIN GLARGINE
     Indication: PRODUCT USED FOR UNKNOWN INDICATION
     Dosage: DOSE:35 UNIT(S)
     Route: 065

REACTIONS (12)
  - Sleep disorder [Unknown]
  - Depression [Unknown]
  - Anxiety [Unknown]
  - Hypoxia [Unknown]
  - Hypertension [Unknown]
  - Liver function test abnormal [Unknown]
  - Sleep apnoea syndrome [Unknown]
  - Diabetes mellitus inadequate control [Unknown]
  - Pancreatitis [Unknown]
  - Dyspnoea [Unknown]
  - Proteinuria [Unknown]
  - Blood count abnormal [Unknown]
